FAERS Safety Report 10905856 (Version 2)
Quarter: 2015Q1

REPORT INFORMATION
  Report Type: Other
  Country: US (occurrence: US)
  Receive Date: 20150311
  Receipt Date: 20150319
  Transmission Date: 20150721
  Serious: Yes (Hospitalization, Other)
  Sender: FDA-Public Use
  Company Number: US-UNITED THERAPEUTICS-UNT-2015-002527

PATIENT
  Age: 37 Year
  Sex: Female
  Weight: 44.9 kg

DRUGS (1)
  1. TYVASO [Suspect]
     Active Substance: TREPROSTINIL
     Indication: PULMONARY HYPERTENSION
     Dosage: 18-54 ?G, QID
     Dates: start: 20140626

REACTIONS (5)
  - Varices oesophageal [Unknown]
  - Upper gastrointestinal haemorrhage [Recovered/Resolved]
  - Oesophageal varices haemorrhage [Unknown]
  - Syncope [Unknown]
  - Haematemesis [Unknown]

NARRATIVE: CASE EVENT DATE: 20150210
